FAERS Safety Report 6619683-0 (Version None)
Quarter: 2010Q1

REPORT INFORMATION
  Report Type: 
  Country: None (occurrence: None)
  Receive Date: 20100304
  Receipt Date: 20100224
  Transmission Date: 20100710
  Serious: Yes (Hospitalization)
  Sender: FDA-Public Use
  Company Number: UKP10000024

PATIENT
  Age: 78 Year
  Sex: Female
  Weight: 70 kg

DRUGS (9)
  1. ACTONEL [Suspect]
     Indication: OSTEOPOROSIS
     Dosage: 35 MG, 1 /WEEK, ORAL
     Route: 048
     Dates: start: 20091101, end: 20091201
  2. ASPIRIN [Suspect]
     Indication: ANGINA PECTORIS
     Dosage: 80 MG, ORAL
     Route: 048
     Dates: start: 20091001, end: 20100128
  3. METOPROLOL (METOPROLOL) [Concomitant]
  4. OMEPRAZOL /00661201/ (OMEPRAZOLE) [Concomitant]
  5. SIMVASTATIN [Concomitant]
  6. TEMAZEPAM ACTAVIS (TEMAZEPAM) [Concomitant]
  7. HYDROCHLOROTHIAZIDE [Concomitant]
  8. NOVOMIX30 (INSULIN ASPART, INSULIN ASPART PROTAMINE) [Concomitant]
  9. SERETIDE DISCUS (FLUTICASONE PROPIONATE, SALMETEROL XINAFOATE) [Concomitant]

REACTIONS (1)
  - LEUKOCYTOCLASTIC VASCULITIS [None]
